FAERS Safety Report 6490468-1 (Version None)
Quarter: 2009Q4

REPORT INFORMATION
  Report Type: 
  Country: None (occurrence: None)
  Receive Date: 20091210
  Receipt Date: 20091210
  Transmission Date: 20100525
  Serious: No
  Sender: FDA-Public Use
  Company Number: None

PATIENT
  Sex: Female
  Weight: 66.6 kg

DRUGS (1)
  1. TEMOZOLOMIDE [Suspect]
     Dosage: 1850 MG

REACTIONS (1)
  - BONE MARROW FAILURE [None]
